FAERS Safety Report 10253072 (Version 1)
Quarter: 2014Q2

REPORT INFORMATION
  Report Type: Spontaneous
  Country: GB (occurrence: GB)
  Receive Date: 20140623
  Receipt Date: 20140623
  Transmission Date: 20141212
  Serious: Yes (Hospitalization, Disabling)
  Sender: FDA-Public Use
  Company Number: GB-PFIZER INC-2014166829

PATIENT
  Age: 45 Year
  Sex: Male
  Weight: 86.17 kg

DRUGS (3)
  1. SIMVASTATIN [Suspect]
     Indication: HYPERCHOLESTEROLAEMIA
     Dosage: 20 MG, ONCE A DAY
     Route: 048
     Dates: start: 20131001, end: 20140330
  2. ATORVASTATIN [Suspect]
     Indication: HYPERCHOLESTEROLAEMIA
     Dosage: 10 MG, ONCE A DAY
     Route: 048
     Dates: start: 20131001, end: 20140228
  3. SINUTAB [Concomitant]

REACTIONS (4)
  - Arthralgia [Recovered/Resolved with Sequelae]
  - Cartilage injury [Unknown]
  - Musculoskeletal pain [Recovered/Resolved with Sequelae]
  - Joint crepitation [Unknown]
